FAERS Safety Report 12377963 (Version 1)
Quarter: 2016Q2

REPORT INFORMATION
  Report Type: Report from Study
  Country: US (occurrence: US)
  Receive Date: 20160517
  Receipt Date: 20160517
  Transmission Date: 20160815
  Serious: No
  Sender: FDA-Public Use
  Company Number: US-MALLINCKRODT-T201600407

PATIENT
  Age: 45 Year
  Sex: Female

DRUGS (2)
  1. REPOSITORY CORTICOTROPIN INJECTION [Suspect]
     Active Substance: CORTICOTROPIN
     Indication: SYSTEMIC LUPUS ERYTHEMATOSUS
     Dosage: 80 UNITS TWICE WKLY (TUE/FRI)
     Route: 058
  2. REPOSITORY CORTICOTROPIN INJECTION [Suspect]
     Active Substance: CORTICOTROPIN
     Dosage: 80 UNITS TIWCE A WEEK (TUE + FRI)
     Route: 058
     Dates: start: 20160125

REACTIONS (14)
  - White blood cell count decreased [Not Recovered/Not Resolved]
  - Malaise [Recovering/Resolving]
  - Rash [Recovering/Resolving]
  - Migraine [Not Recovered/Not Resolved]
  - Urticaria [Recovered/Resolved]
  - Antinuclear antibody increased [Not Recovered/Not Resolved]
  - Red blood cell sedimentation rate increased [Not Recovered/Not Resolved]
  - Injection site erythema [Recovering/Resolving]
  - Abdominal discomfort [Recovering/Resolving]
  - Liver function test increased [Not Recovered/Not Resolved]
  - Injection site pruritus [Recovering/Resolving]
  - Injection site bruising [Recovering/Resolving]
  - Headache [Not Recovered/Not Resolved]
  - Blood glucose increased [Not Recovered/Not Resolved]

NARRATIVE: CASE EVENT DATE: 201602
